FAERS Safety Report 24606740 (Version 1)
Quarter: 2024Q4

REPORT INFORMATION
  Report Type: Spontaneous
  Country: CN (occurrence: CN)
  Receive Date: 20241112
  Receipt Date: 20241112
  Transmission Date: 20250115
  Serious: Yes (Other)
  Sender: Unknown Manufacturer
  Company Number: CN-ASTRAZENECA-202410CHN026264CN

PATIENT

DRUGS (2)
  1. METOPROLOL SUCCINATE [Suspect]
     Active Substance: METOPROLOL SUCCINATE
     Indication: Heart rate
     Dosage: 47.5 MILLIGRAM, QD
     Dates: start: 20241012, end: 20241016
  2. WARFARIN SODIUM [Suspect]
     Active Substance: WARFARIN SODIUM
     Indication: Anticoagulation drug level therapeutic
     Dosage: 3.75 MILLIGRAM, QD
     Dates: start: 20241012, end: 20241016

REACTIONS (1)
  - Hypokalaemia [Recovering/Resolving]

NARRATIVE: CASE EVENT DATE: 20241014
